FAERS Safety Report 9754768 (Version 1)
Quarter: 2013Q4

REPORT INFORMATION
  Report Type: Spontaneous
  Country: US (occurrence: US)
  Receive Date: 20131213
  Receipt Date: 20131213
  Transmission Date: 20140711
  Serious: No
  Sender: FDA-Public Use
  Company Number: US-GLAXOSMITHKLINE-A1005502A

PATIENT
  Age: 53 Year
  Sex: Female

DRUGS (2)
  1. TARGET NTS CLEAR 7 MG [Suspect]
     Indication: EX-TOBACCO USER
     Dates: end: 20121214
  2. TARGET NTS CLEAR 14 MG [Suspect]
     Indication: EX-TOBACCO USER
     Dates: end: 20121214

REACTIONS (4)
  - Anxiety [Recovered/Resolved]
  - Insomnia [Recovered/Resolved]
  - Nicotine dependence [Recovered/Resolved]
  - Drug administration error [Unknown]
